FAERS Safety Report 24985559 (Version 7)
Quarter: 2025Q3

REPORT INFORMATION
  Report Type: Report from Study
  Country: US (occurrence: US)
  Receive Date: 20250219
  Receipt Date: 20250821
  Transmission Date: 20251021
  Serious: Yes (Hospitalization, Other)
  Sender: SUNOVION
  Company Number: US-SMPA-2025SPA001652

PATIENT
  Age: 82 Year
  Sex: Male

DRUGS (28)
  1. ORGOVYX [Suspect]
     Active Substance: RELUGOLIX
     Indication: Prostate cancer
     Dosage: 360 MG, SINGLE
     Route: 048
  2. ORGOVYX [Suspect]
     Active Substance: RELUGOLIX
     Dosage: 120 MG, QD
     Route: 048
  3. NUBEQA [Suspect]
     Active Substance: DAROLUTAMIDE
  4. NUBEQA [Suspect]
     Active Substance: DAROLUTAMIDE
     Dosage: 2 DF, QD (2 TABLETS TWICE DAILY)
  5. ALBUTEROL [Concomitant]
     Active Substance: ALBUTEROL
  6. ALLOPURINOL [Concomitant]
     Active Substance: ALLOPURINOL
  7. ASPIRIN [Concomitant]
     Active Substance: ASPIRIN
  8. ATORVASTATIN [Concomitant]
     Active Substance: ATORVASTATIN
  9. BENADRYL ALLERGY [Concomitant]
     Active Substance: DIPHENHYDRAMINE HYDROCHLORIDE
  10. BISOPROLOL [Concomitant]
     Active Substance: BISOPROLOL
  11. VITAMIN B12 [Concomitant]
     Active Substance: CYANOCOBALAMIN
  12. ELIQUIS [Concomitant]
     Active Substance: APIXABAN
  13. FUROSEMIDE [Concomitant]
     Active Substance: FUROSEMIDE
  14. GARLIC OIL [Concomitant]
     Active Substance: GARLIC OIL
     Route: 048
  15. IPRATROPIUM BROMIDE AND ALBUTEROL SULFATE [Concomitant]
     Active Substance: ALBUTEROL SULFATE\IPRATROPIUM BROMIDE
  16. LEVOTHYROXINE [Concomitant]
     Active Substance: LEVOTHYROXINE
  17. LOSARTAN [Concomitant]
     Active Substance: LOSARTAN
  18. SYMBICORT [Concomitant]
     Active Substance: BUDESONIDE\FORMOTEROL FUMARATE DIHYDRATE
  19. TAMSULOSIN [Concomitant]
     Active Substance: TAMSULOSIN
  20. TYLENOL EXTRA STRENGTH [Concomitant]
     Active Substance: ACETAMINOPHEN
  21. VITAMIN A [Concomitant]
     Active Substance: VITAMIN A
  22. VITAMIN C [Concomitant]
     Active Substance: ASCORBIC ACID
  23. VITAMIN D3 [Concomitant]
     Active Substance: CHOLECALCIFEROL
  24. WIXELA INHUB [Concomitant]
     Active Substance: FLUTICASONE PROPIONATE\SALMETEROL XINAFOATE
  25. ZOLPIDEM [Concomitant]
     Active Substance: ZOLPIDEM TARTRATE
  26. IPRATROPIUM BROMIDE AND ALBUTEROL SULFATE [Concomitant]
     Active Substance: ALBUTEROL SULFATE\IPRATROPIUM BROMIDE
  27. ALBUTEROL SULFATE [Concomitant]
     Active Substance: ALBUTEROL SULFATE
  28. TELMISARTAN [Concomitant]
     Active Substance: TELMISARTAN

REACTIONS (12)
  - Prostate cancer [Unknown]
  - Endovenous ablation [Unknown]
  - Blood urine present [Unknown]
  - Urinary tract infection [Unknown]
  - Peripheral swelling [Unknown]
  - Prostatic specific antigen increased [Unknown]
  - Feeling abnormal [Unknown]
  - Pain [Unknown]
  - Malaise [Unknown]
  - Weight increased [Unknown]
  - Asthenia [Unknown]
  - Constipation [Unknown]
